FAERS Safety Report 6811193-0 (Version None)
Quarter: 2010Q2

REPORT INFORMATION
  Report Type: 
  Country: None (occurrence: None)
  Receive Date: 20100630
  Receipt Date: 20100623
  Transmission Date: 20101027
  Serious: Yes (Death, Hospitalization)
  Sender: FDA-Public Use
  Company Number: DE-ABBOTT-10P-062-0642842-00

PATIENT
  Sex: Female
  Weight: 110 kg

DRUGS (9)
  1. HUMIRA [Suspect]
     Indication: RHEUMATOID ARTHRITIS
     Route: 058
     Dates: start: 20040112, end: 20100226
  2. METHYLPREDNISOLONE [Concomitant]
     Indication: RHEUMATOID ARTHRITIS
     Dates: start: 20081001
  3. ETORICOXIB [Concomitant]
     Indication: RHEUMATOID ARTHRITIS
     Dates: start: 20070119
  4. PANTOPRAZOL [Concomitant]
     Indication: REFLUX OESOPHAGITIS
     Dates: start: 20091001
  5. CALCILAC [Concomitant]
     Indication: OSTEOPOROSIS
     Dosage: 500/400 MG/IE
     Dates: start: 20081113
  6. DIOVAN [Concomitant]
     Indication: HYPERTENSION
     Dates: start: 20100301
  7. FALITHROM [Concomitant]
     Indication: PULMONARY EMBOLISM
     Dates: start: 20100304
  8. METHOTREXATE [Concomitant]
     Indication: RHEUMATOID ARTHRITIS
     Dates: start: 20090305
  9. COMMERCIAL HUMIRA [Concomitant]
     Indication: RHEUMATOID ARTHRITIS
     Dates: start: 20031118

REACTIONS (1)
  - PUBIC PAIN [None]
